FAERS Safety Report 18968799 (Version 1)
Quarter: 2021Q1

REPORT INFORMATION
  Report Type: Spontaneous
  Country: US (occurrence: US)
  Receive Date: 20210304
  Receipt Date: 20210304
  Transmission Date: 20210420
  Serious: Yes (Death, Hospitalization)
  Sender: FDA-Public Use
  Company Number: US-MYLANLABS-2021M1013041

PATIENT
  Age: 35 Year
  Sex: Female

DRUGS (2)
  1. DOXORUBICIN [Suspect]
     Active Substance: DOXORUBICIN
     Indication: OSTEOSARCOMA
     Dosage: UNK UNK,6 CYCLE
     Route: 065
  2. CISPLATIN. [Concomitant]
     Active Substance: CISPLATIN
     Indication: OSTEOSARCOMA
     Dosage: RECEIVED 6 CYCLES
     Route: 065

REACTIONS (8)
  - Respiratory failure [Fatal]
  - Pericardial effusion [Fatal]
  - Cardiac tamponade [Fatal]
  - Cardiorenal syndrome [Fatal]
  - Cardiotoxicity [Fatal]
  - Cardiogenic shock [Fatal]
  - Haemodynamic instability [Fatal]
  - Acute respiratory failure [Fatal]
